FAERS Safety Report 21148286 (Version 3)
Quarter: 2022Q3

REPORT INFORMATION
  Report Type: Report from Study
  Country: US (occurrence: US)
  Receive Date: 20220729
  Receipt Date: 20220823
  Transmission Date: 20221027
  Serious: Yes (Other)
  Sender: FDA-Public Use
  Company Number: US-UCBSA-2022041734

PATIENT
  Age: 69 Year
  Sex: Female

DRUGS (2)
  1. CERTOLIZUMAB PEGOL [Interacting]
     Active Substance: CERTOLIZUMAB PEGOL
     Indication: Rheumatoid arthritis
     Dosage: 400 MILLIGRAM, EV 2 WEEKS(QOW)
     Route: 058
     Dates: start: 20220715, end: 20220809
  2. COUMADIN [Interacting]
     Active Substance: WARFARIN SODIUM
     Indication: Product used for unknown indication
     Dosage: UNK

REACTIONS (6)
  - Ocular hyperaemia [Recovering/Resolving]
  - Contusion [Recovering/Resolving]
  - Candida infection [Recovering/Resolving]
  - Fatigue [Not Recovered/Not Resolved]
  - Laboratory test abnormal [Recovering/Resolving]
  - Drug interaction [Recovering/Resolving]

NARRATIVE: CASE EVENT DATE: 20220717
